FAERS Safety Report 8332577-8 (Version None)
Quarter: 2012Q2

REPORT INFORMATION
  Report Type: 
  Country: None (occurrence: None)
  Receive Date: 20120503
  Receipt Date: 20120423
  Transmission Date: 20120825
  Serious: No
  Sender: FDA-Public Use
  Company Number: US-JNJFOC-20120411346

PATIENT
  Sex: Male
  Weight: 129.28 kg

DRUGS (1)
  1. FENTANYL [Suspect]
     Indication: MYASTHENIA GRAVIS
     Route: 062
     Dates: start: 20120323

REACTIONS (3)
  - PRODUCT QUALITY ISSUE [None]
  - WRONG TECHNIQUE IN DRUG USAGE PROCESS [None]
  - DRUG EFFECT DECREASED [None]
